FAERS Safety Report 5340612-4 (Version None)
Quarter: 2007Q2

REPORT INFORMATION
  Report Type: 
  Country: None (occurrence: None)
  Receive Date: 20070405
  Receipt Date: 20070110
  Transmission Date: 20071010
  Serious: No
  Sender: FDA-Public Use
  Company Number: US200701001939

PATIENT
  Sex: Female

DRUGS (12)
  1. CYMBALTA [Suspect]
     Dosage: 60 MG, DAILY (1/D)
     Dates: start: 20061204
  2. FUROSEMIDE [Concomitant]
  3. AMERGE [Concomitant]
  4. TOPAMAX [Concomitant]
  5. VALTREX [Concomitant]
  6. TRAMADOL HCL [Concomitant]
  7. TRICOR [Concomitant]
  8. MAVIK [Concomitant]
  9. DOLOBID [Concomitant]
  10. DICLOFENAC [Concomitant]
  11. MIDRIN [Concomitant]
  12. DARVOCET [Concomitant]

REACTIONS (1)
  - CRYING [None]
